FAERS Safety Report 8189631-3 (Version None)
Quarter: 2012Q1

REPORT INFORMATION
  Report Type: 
  Country: None (occurrence: None)
  Receive Date: 20120307
  Receipt Date: 20120227
  Transmission Date: 20120608
  Serious: Yes (Other)
  Sender: FDA-Public Use
  Company Number: JP-BRISTOL-MYERS SQUIBB COMPANY-16425183

PATIENT
  Age: 42 Year
  Sex: Male

DRUGS (8)
  1. AMARYL [Concomitant]
     Route: 048
  2. CRESTOR [Concomitant]
     Route: 048
  3. IBRUPROFEN [Concomitant]
     Route: 048
  4. AVAPRO [Concomitant]
     Route: 048
  5. APIDRA [Concomitant]
     Dosage: FORMULATION-INJECTION
     Route: 058
  6. LANTUS [Concomitant]
     Dosage: FORMULATION -INJ
     Route: 058
  7. MIGLITOL [Concomitant]
     Route: 048
  8. METFORMIN HCL [Suspect]
     Indication: DIABETES MELLITUS
     Route: 048

REACTIONS (1)
  - RENAL IMPAIRMENT [None]
